FAERS Safety Report 8505192-0 (Version None)
Quarter: 2012Q3

REPORT INFORMATION
  Report Type: 
  Country: None (occurrence: None)
  Receive Date: 20120712
  Receipt Date: 20120710
  Transmission Date: 20120928
  Serious: Yes (Hospitalization)
  Sender: FDA-Public Use
  Company Number: IT-PFIZER INC-2012165854

PATIENT
  Age: 64 Year
  Sex: Female

DRUGS (3)
  1. MEDROL [Suspect]
     Indication: DRUG TOLERANCE
     Dosage: 6 MG, TOTAL DOSE
     Route: 048
     Dates: start: 20120704, end: 20120704
  2. ASPIRIN [Concomitant]
     Dosage: 100 MG, UNK
     Route: 048
  3. BISOPROLOL FUMARATE [Concomitant]
     Dosage: 1.25 MG, UNK
     Route: 048

REACTIONS (3)
  - DIZZINESS [None]
  - MALAISE [None]
  - RASH ERYTHEMATOUS [None]
